FAERS Safety Report 16202147 (Version 1)
Quarter: 2019Q2

REPORT INFORMATION
  Report Type: Report from Study
  Country: AU (occurrence: AU)
  Receive Date: 20190416
  Receipt Date: 20190416
  Transmission Date: 20190711
  Serious: Yes (Other)
  Sender: FDA-Public Use
  Company Number: AU-TEVA-2019-AU-1039341

PATIENT
  Sex: Male

DRUGS (2)
  1. RITUXIMAB. [Suspect]
     Active Substance: RITUXIMAB
     Indication: SPLENIC MARGINAL ZONE LYMPHOMA
     Dosage: UNK UNK, CYCLIC (2.5 CYCLES)
     Route: 065
  2. RIBOMUSTIN [Suspect]
     Active Substance: BENDAMUSTINE HYDROCHLORIDE
     Indication: SPLENIC MARGINAL ZONE LYMPHOMA
     Dosage: UNK UNK, CYCLIC (6 CYCLES)
     Route: 042

REACTIONS (6)
  - Unresponsive to stimuli [Unknown]
  - Hypotension [Unknown]
  - Vomiting [Unknown]
  - Chills [Unknown]
  - Chest pain [Unknown]
  - Rash [Unknown]
